FAERS Safety Report 10486888 (Version 4)
Quarter: 2016Q1

REPORT INFORMATION
  Report Type: Report from Study
  Country: US (occurrence: US)
  Receive Date: 20141001
  Receipt Date: 20160331
  Transmission Date: 20160525
  Serious: Yes (Other)
  Sender: FDA-Public Use
  Company Number: US-SA-2014SA132324

PATIENT
  Age: 62 Year
  Sex: Female

DRUGS (5)
  1. LANTUS [Suspect]
     Active Substance: INSULIN GLARGINE
     Indication: TYPE 2 DIABETES MELLITUS
     Dosage: DOSE: 70-75 UNITS
     Route: 065
     Dates: start: 2004
  2. LANTUS [Suspect]
     Active Substance: INSULIN GLARGINE
     Indication: TYPE 2 DIABETES MELLITUS
     Dosage: DOSE:50 UNIT(S)
     Route: 058
     Dates: start: 20141012
  3. GLIPIZIDE. [Suspect]
     Active Substance: GLIPIZIDE
     Indication: DIABETES MELLITUS
     Route: 065
     Dates: start: 2004
  4. HUMULIN NOS [Suspect]
     Active Substance: INSULIN HUMAN
     Dosage: DOSE:15 UNIT(S)
     Route: 065
  5. LANTUS [Suspect]
     Active Substance: INSULIN GLARGINE
     Indication: TYPE 2 DIABETES MELLITUS
     Dosage: DOSE INCREASED
     Route: 065

REACTIONS (13)
  - Bronchitis [Recovering/Resolving]
  - Cystitis [Unknown]
  - Croup infectious [Recovering/Resolving]
  - Pneumonia [Recovering/Resolving]
  - Sinusitis [Recovering/Resolving]
  - Malaise [Unknown]
  - Blood glucose decreased [Recovering/Resolving]
  - Weight decreased [Recovering/Resolving]
  - Expired product administered [Unknown]
  - Asthma [Recovering/Resolving]
  - Kidney infection [Unknown]
  - Tooth infection [Unknown]
  - Laryngitis viral [Recovering/Resolving]

NARRATIVE: CASE EVENT DATE: 201409
